FAERS Safety Report 9678056 (Version 1)
Quarter: 2013Q4

REPORT INFORMATION
  Report Type: Spontaneous
  Country: US (occurrence: None)
  Receive Date: 20131107
  Receipt Date: 20131107
  Transmission Date: 20140711
  Serious: Yes (Other)
  Sender: FDA-Public Use
  Company Number: None

PATIENT
  Age: 28 Year
  Sex: Female
  Weight: 54.43 kg

DRUGS (1)
  1. MRTHYLPHENIDATE ER 36MG [Suspect]
     Indication: ATTENTION DEFICIT/HYPERACTIVITY DISORDER
     Dosage: 2 TABS
     Route: 048

REACTIONS (10)
  - Anxiety [None]
  - Derealisation [None]
  - Social avoidant behaviour [None]
  - Fatigue [None]
  - Disorientation [None]
  - Confusional state [None]
  - Vision blurred [None]
  - Suicidal ideation [None]
  - Product quality issue [None]
  - Product substitution issue [None]
